FAERS Safety Report 12298612 (Version 1)
Quarter: 2016Q2

REPORT INFORMATION
  Report Type: Report from Study
  Country: CN (occurrence: CN)
  Receive Date: 20160425
  Receipt Date: 20160425
  Transmission Date: 20160815
  Serious: Yes (Hospitalization, Other)
  Sender: FDA-Public Use
  Company Number: CN-ROCHE-1665624

PATIENT
  Sex: Male
  Weight: 63 kg

DRUGS (2)
  1. AVASTIN [Suspect]
     Active Substance: BEVACIZUMAB
     Indication: RECTAL CANCER
     Route: 041
     Dates: start: 20150611, end: 20160114
  2. AVASTIN [Suspect]
     Active Substance: BEVACIZUMAB
     Dosage: RESTARTED
     Route: 041

REACTIONS (12)
  - Ureteric stenosis [Recovering/Resolving]
  - Neoplasm [Unknown]
  - Dysuria [Unknown]
  - Epistaxis [Recovered/Resolved]
  - Pain [Unknown]
  - Hydronephrosis [Recovering/Resolving]
  - Abdominal pain lower [Unknown]
  - Urethral pain [Unknown]
  - Mouth haemorrhage [Recovered/Resolved]
  - Ascites [Unknown]
  - Renal hydrocele [Unknown]
  - Haemoptysis [Recovered/Resolved]
